FAERS Safety Report 6820816-1 (Version None)
Quarter: 2010Q3

REPORT INFORMATION
  Report Type: 
  Country: None (occurrence: None)
  Receive Date: 20100707
  Receipt Date: 20100623
  Transmission Date: 20110219
  Serious: Yes (Life-Threatening, Hospitalization)
  Sender: FDA-Public Use
  Company Number: FR-GENENTECH-303513

PATIENT
  Age: 21 Year
  Sex: Male
  Weight: 50 kg

DRUGS (8)
  1. MABTHERA [Suspect]
     Indication: PROPHYLAXIS
     Dosage: UNK
     Route: 065
     Dates: start: 20090728, end: 20090730
  2. MIRCERA [Suspect]
     Indication: ANAEMIA
     Dosage: 150 A?G, 1/MONTH
     Route: 065
     Dates: start: 20090601
  3. MIRCERA [Suspect]
     Dosage: 200 A?G, UNK
     Route: 065
     Dates: start: 20090902
  4. MIRCERA [Suspect]
     Dosage: 150 A?G, UNK
     Route: 065
     Dates: start: 20091201
  5. MIRCERA [Suspect]
     Dosage: 120 A?G, UNK
     Route: 065
     Dates: start: 20100301
  6. MIRCERA [Suspect]
     Dosage: 75 A?G, UNK
     Route: 065
     Dates: start: 20100501
  7. BACTRIM [Suspect]
     Indication: PROPHYLAXIS
     Dosage: UNK
     Route: 065
     Dates: start: 20090728
  8. VENOFER [Concomitant]
     Indication: ANAEMIA
     Dosage: 100 MG, UNK

REACTIONS (4)
  - ANAEMIA [None]
  - BLOOD SODIUM INCREASED [None]
  - HYPERTENSIVE ENCEPHALOPATHY [None]
  - LUNG INFECTION [None]
